FAERS Safety Report 5385118-1 (Version None)
Quarter: 2007Q3

REPORT INFORMATION
  Report Type: 
  Country: None (occurrence: None)
  Receive Date: 20070706
  Receipt Date: 20070706
  Transmission Date: 20080115
  Serious: No
  Sender: FDA-Public Use
  Company Number: None

PATIENT
  Age: 56 Year
  Sex: Male
  Weight: 81.6475 kg

DRUGS (2)
  1. ZOLPIDEM [Suspect]
     Indication: INSOMNIA
     Dosage: 10 MG HS PO
     Route: 048
     Dates: start: 20070624
  2. ZOLPIDEM [Suspect]
     Indication: INSOMNIA
     Dosage: 10 MG HS PO
     Route: 048
     Dates: start: 20070626

REACTIONS (4)
  - DRUG EFFECT DECREASED [None]
  - FEELING ABNORMAL [None]
  - INSOMNIA [None]
  - PHARMACEUTICAL PRODUCT COMPLAINT [None]
